FAERS Safety Report 22320418 (Version 1)
Quarter: 2023Q2

REPORT INFORMATION
  Report Type: Spontaneous
  Country: None (occurrence: LT)
  Receive Date: 20230515
  Receipt Date: 20230515
  Transmission Date: 20230722
  Serious: Yes (Hospitalization)
  Sender: FDA-Public Use
  Company Number: LT-B.Braun Medical Inc.-2141464

PATIENT
  Age: 30 Year
  Sex: Female

DRUGS (17)
  1. DEXTROSE [Suspect]
     Active Substance: DEXTROSE\DEXTROSE MONOHYDRATE
  2. SODIUM CHLORIDE [Suspect]
     Active Substance: SODIUM CHLORIDE
  3. POTASSIUM CHLORIDE [Suspect]
     Active Substance: POTASSIUM CHLORIDE
  4. INSULIN NOS [Suspect]
     Active Substance: INSULIN NOS
  5. FIASP [Suspect]
     Active Substance: INSULIN ASPART
  6. PAROXETINE [Suspect]
     Active Substance: PAROXETINE
  7. ESCITALOPRAM [Suspect]
     Active Substance: ESCITALOPRAM OXALATE
  8. ONDANSETRON [Suspect]
     Active Substance: ONDANSETRON
  9. METOCLOPRAMIDE [Suspect]
     Active Substance: METOCLOPRAMIDE
  10. TIAPRIDE [Suspect]
     Active Substance: TIAPRIDE
  11. LANTUS [Suspect]
     Active Substance: INSULIN GLARGINE
  12. BISOPROLOL. [Suspect]
     Active Substance: BISOPROLOL FUMARATE
  13. AMLODIPINE [Suspect]
     Active Substance: AMLODIPINE BESYLATE
  14. LORAZEPAM [Suspect]
     Active Substance: LORAZEPAM
  15. HALOPERIDOL [Suspect]
     Active Substance: HALOPERIDOL
  16. SULPIRIDE [Suspect]
     Active Substance: SULPIRIDE
  17. DIAZEPAM [Suspect]
     Active Substance: DIAZEPAM

REACTIONS (3)
  - Vomiting [Unknown]
  - Nausea [Unknown]
  - Maternal exposure during pregnancy [Unknown]
